FAERS Safety Report 7231884-X (Version None)
Quarter: 2011Q1

REPORT INFORMATION
  Report Type: 
  Country: None (occurrence: None)
  Receive Date: 20110118
  Receipt Date: 20110110
  Transmission Date: 20110831
  Serious: Yes (Hospitalization)
  Sender: FDA-Public Use
  Company Number: DE-PFIZER INC-2011011655

PATIENT

DRUGS (2)
  1. DRONEDARONE [Suspect]
     Indication: ATRIAL FIBRILLATION
  2. CORDAREX [Suspect]

REACTIONS (1)
  - LUNG DISORDER [None]
